FAERS Safety Report 21002985 (Version 1)
Quarter: 2022Q2

REPORT INFORMATION
  Report Type: Other
  Country: None (occurrence: GB)
  Receive Date: 20220624
  Receipt Date: 20220624
  Transmission Date: 20220721
  Serious: Yes (Hospitalization, Other)
  Sender: FDA-Public Use
  Company Number: GB-Innogenix, LLC-2130233

PATIENT
  Sex: Male

DRUGS (3)
  1. METOLAZONE [Suspect]
     Active Substance: METOLAZONE
     Indication: Portopulmonary hypertension
     Route: 065
  2. PROPRANOLOL [Concomitant]
     Active Substance: PROPRANOLOL HYDROCHLORIDE
     Route: 065
  3. TERLIPRESSIN [Concomitant]
     Active Substance: TERLIPRESSIN
     Route: 065

REACTIONS (2)
  - Renal impairment [Unknown]
  - Condition aggravated [Unknown]
